FAERS Safety Report 9709948 (Version 2)
Quarter: 2014Q1

REPORT INFORMATION
  Report Type: Spontaneous
  Country: RS (occurrence: RS)
  Receive Date: 20131126
  Receipt Date: 20140128
  Transmission Date: 20141002
  Serious: Yes (Other)
  Sender: FDA-Public Use
  Company Number: RS-BEH-2013038922

PATIENT
  Sex: Female

DRUGS (1)
  1. IG VENA [Suspect]
     Indication: IMMUNE THROMBOCYTOPENIC PURPURA

REACTIONS (1)
  - Acute myocardial infarction [Recovered/Resolved]
